FAERS Safety Report 6626673-0 (Version None)
Quarter: 2010Q1

REPORT INFORMATION
  Report Type: 
  Country: None (occurrence: None)
  Receive Date: 20100308
  Receipt Date: 20100218
  Transmission Date: 20100710
  Serious: Yes (Death, Hospitalization)
  Sender: FDA-Public Use
  Company Number: 2009BI026864

PATIENT
  Age: 74 Year
  Sex: Male

DRUGS (19)
  1. ZEVALIN [Suspect]
     Indication: B-CELL LYMPHOMA
     Dosage: 666 MGQ; 1X; IV
     Route: 042
     Dates: start: 20090303, end: 20090310
  2. RITUXIMAB [Concomitant]
  3. LOXONIN [Concomitant]
  4. POLARAMINE [Concomitant]
  5. ALLOID G [Concomitant]
  6. FAMOTIDINE [Concomitant]
  7. ZOVIRAX [Concomitant]
  8. MAGNESIUM OXIDE [Concomitant]
  9. DECADRON [Concomitant]
  10. GLYSENNID [Concomitant]
  11. METHYCOBAL [Concomitant]
  12. RIVOTRIL [Concomitant]
  13. CIPROXAN [Concomitant]
  14. RITUXIMAB [Concomitant]
  15. DEXAMETHASONE [Concomitant]
  16. CYTARABINE [Concomitant]
  17. CYCLOPHOSPHAMIDE [Concomitant]
  18. ETOPOSIDE [Concomitant]
  19. FLUDEOXYGLUCOSE [Concomitant]

REACTIONS (5)
  - ABDOMINAL PAIN [None]
  - B-CELL LYMPHOMA [None]
  - BONE MARROW FAILURE [None]
  - MALIGNANT NEOPLASM PROGRESSION [None]
  - NAUSEA [None]
